FAERS Safety Report 4754180-9 (Version None)
Quarter: 2005Q3

REPORT INFORMATION
  Report Type: 
  Country: None (occurrence: None)
  Receive Date: 20050825
  Receipt Date: 20041116
  Transmission Date: 20060218
  Serious: Yes (Hospitalization)
  Sender: FDA-Public Use
  Company Number: 200418835US

PATIENT
  Age: 80 Year
  Sex: Female

DRUGS (16)
  1. LASIX [Suspect]
     Dosage: 20 MG QD PO
     Route: 048
     Dates: end: 20041014
  2. MOXIFLOXACIN HYDROCHLORIDE (AVELOX) [Concomitant]
  3. WARFARIN SODIUM [Concomitant]
  4. VITAMINS NOS, MINERALS NOS (CENTRUM) [Concomitant]
  5. SYNTHROID [Concomitant]
  6. ATENOLOL [Concomitant]
  7. ISPAGHULA HUSK [Concomitant]
  8. LATANOPROST (XALATAN) [Concomitant]
  9. SULTAMICILLIN (UNASYN ORAL SUSPENSION) [Concomitant]
  10. LANOXIN [Concomitant]
  11. FOSAMAX [Concomitant]
  12. VITAMIN E [Concomitant]
  13. ASCORBIC ACID [Concomitant]
  14. CALCIUM CITRATE (CITRACAL) [Concomitant]
  15. LIPITOR [Concomitant]
  16. CEFTRIAXONE [Concomitant]

REACTIONS (9)
  - ABDOMINAL PAIN [None]
  - BLOOD AMYLASE INCREASED [None]
  - CHEST PAIN [None]
  - DIARRHOEA [None]
  - LIPASE INCREASED [None]
  - NAUSEA [None]
  - PANCREATITIS ACUTE [None]
  - PYREXIA [None]
  - VOMITING [None]
